FAERS Safety Report 26014208 (Version 1)
Quarter: 2025Q4

REPORT INFORMATION
  Report Type: Spontaneous
  Country: EU (occurrence: EU)
  Receive Date: 20251108
  Receipt Date: 20251108
  Transmission Date: 20260117
  Serious: Yes (Life-Threatening, Hospitalization, Disabling, Other)
  Sender: GLAXOSMITHKLINE
  Company Number: None

PATIENT
  Age: 62 Year
  Sex: Female
  Weight: 56 kg

DRUGS (6)
  1. MOMELOTINIB DIHYDROCHLORIDE [Suspect]
     Active Substance: MOMELOTINIB DIHYDROCHLORIDE
     Indication: Myelofibrosis
     Dosage: 200 MG, QD (30 TABLETS)
  2. PREDNISONE [Concomitant]
     Active Substance: PREDNISONE
     Indication: Product used for unknown indication
     Dosage: 1 DF, QD (30 TABLETS)
  3. ATENOLOL ALTER [Concomitant]
     Indication: Product used for unknown indication
     Dosage: 1 DF, QD (30 TABLETS)
  4. SIMVASTATIN [Concomitant]
     Active Substance: SIMVASTATIN
     Indication: Product used for unknown indication
     Dosage: 1 DF, QD (500 TABLETS)
  5. LOPERAMIDE AUROVITAS [Concomitant]
     Indication: Product used for unknown indication
     Dosage: 1 DF, QD (10 CAPSULE)
  6. ONDANSETRON ARISTO [Concomitant]
     Indication: Product used for unknown indication
     Dosage: 1 DF, QD (10 TABLETS)

REACTIONS (1)
  - Ischaemic stroke [Recovering/Resolving]

NARRATIVE: CASE EVENT DATE: 20251019
